FAERS Safety Report 6982531-3 (Version None)
Quarter: 2010Q3

REPORT INFORMATION
  Report Type: 
  Country: None (occurrence: None)
  Receive Date: 20100914
  Receipt Date: 20100909
  Transmission Date: 20110219
  Serious: Yes (Death)
  Sender: FDA-Public Use
  Company Number: CA-GILEAD-E2B_00000837

PATIENT
  Sex: Male

DRUGS (1)
  1. VOLIBRIS [Suspect]
     Indication: PULMONARY HYPERTENSION
     Dosage: 5MG PER DAY
     Route: 048
     Dates: start: 20090421, end: 20100907

REACTIONS (1)
  - DEATH [None]
